FAERS Safety Report 15718693 (Version 1)
Quarter: 2018Q4

REPORT INFORMATION
  Report Type: Spontaneous
  Country: US (occurrence: US)
  Receive Date: 20181213
  Receipt Date: 20181213
  Transmission Date: 20190205
  Serious: Yes (Hospitalization, Other)
  Sender: FDA-Public Use
  Company Number: US-GLAXOSMITHKLINE-US2018GSK222682

PATIENT
  Sex: Female

DRUGS (7)
  1. ABILIFY [Concomitant]
     Active Substance: ARIPIPRAZOLE
     Indication: BIPOLAR I DISORDER
     Dosage: UNK
  2. GEODON [Concomitant]
     Active Substance: ZIPRASIDONE HYDROCHLORIDE\ZIPRASIDONE MESYLATE
     Indication: PRODUCT USED FOR UNKNOWN INDICATION
  3. SEROQUEL [Concomitant]
     Active Substance: QUETIAPINE FUMARATE
     Indication: PRODUCT USED FOR UNKNOWN INDICATION
  4. HALDOL [Concomitant]
     Active Substance: HALOPERIDOL
     Indication: PRODUCT USED FOR UNKNOWN INDICATION
     Dosage: UNK
  5. HALDOL [Concomitant]
     Active Substance: HALOPERIDOL
     Dosage: UNK
  6. TRILEPTAL [Concomitant]
     Active Substance: OXCARBAZEPINE
     Indication: AFFECTIVE DISORDER
  7. LAMICTAL [Suspect]
     Active Substance: LAMOTRIGINE
     Indication: PRODUCT USED FOR UNKNOWN INDICATION
     Dosage: UNK

REACTIONS (13)
  - Restlessness [Recovered/Resolved]
  - Product dose omission [Unknown]
  - Headache [Recovered/Resolved]
  - Insomnia [Recovered/Resolved]
  - Suicidal ideation [Unknown]
  - Anger [Recovered/Resolved]
  - Akathisia [Recovered/Resolved]
  - Drug ineffective [Unknown]
  - Depression [Unknown]
  - Increased appetite [Recovered/Resolved]
  - Weight increased [Recovered/Resolved]
  - Feeling abnormal [Unknown]
  - Dizziness [Recovered/Resolved]
